FAERS Safety Report 16409691 (Version 1)
Quarter: 2019Q2

REPORT INFORMATION
  Report Type: Spontaneous
  Country: JP (occurrence: JP)
  Receive Date: 20190610
  Receipt Date: 20190610
  Transmission Date: 20190711
  Serious: Yes (Other)
  Sender: FDA-Public Use
  Company Number: JP-PFIZER INC-2019235766

PATIENT
  Sex: Male

DRUGS (1)
  1. LYRICA [Suspect]
     Active Substance: PREGABALIN
     Dosage: 125 MG, DAILY (50MG AT NOON, 75 MG IN THE EVENING)
     Route: 048

REACTIONS (2)
  - Cardiac failure [Recovering/Resolving]
  - Heart rate decreased [Recovering/Resolving]
